FAERS Safety Report 8777485 (Version 2)
Quarter: 2012Q4

REPORT INFORMATION
  Report Type: 
  Country: US (occurrence: US)
  Receive Date: 20120911
  Receipt Date: 20121204
  Transmission Date: 20130627
  Serious: No
  Sender: FDA-Public Use
  Company Number: US-B.I. PHARMACEUTICALS,INC./RIDGEFIELD-2012-BP-21466BP

PATIENT
  Age: 69 Year
  Sex: Female

DRUGS (7)
  1. SPIRIVA [Suspect]
     Indication: EMPHYSEMA
     Dosage: 18 mcg
     Route: 055
     Dates: start: 20120807, end: 20120827
  2. METFORMIN [Concomitant]
     Indication: TYPE 2 DIABETES MELLITUS
     Route: 048
  3. VESICARE [Concomitant]
     Indication: URINARY RETENTION
     Route: 048
     Dates: start: 2009
  4. LASIX [Concomitant]
     Indication: OEDEMA PERIPHERAL
     Dosage: 20 mg
     Route: 048
     Dates: start: 2007
  5. INSULIN [Concomitant]
     Indication: TYPE 2 DIABETES MELLITUS
     Dosage: 2 U
     Route: 058
  6. HUMULIN [Concomitant]
     Indication: TYPE 2 DIABETES MELLITUS
     Dosage: 100 U
     Route: 058
  7. LANTUS [Concomitant]
     Indication: TYPE 2 DIABETES MELLITUS
     Dosage: 120 U
     Route: 058

REACTIONS (3)
  - Non-cardiac chest pain [Not Recovered/Not Resolved]
  - Sleep disorder [Not Recovered/Not Resolved]
  - Dyspnoea [Recovered/Resolved]
